FAERS Safety Report 6842705-9 (Version None)
Quarter: 2010Q3

REPORT INFORMATION
  Report Type: 
  Country: None (occurrence: None)
  Receive Date: 20100714
  Receipt Date: 20070801
  Transmission Date: 20110219
  Serious: No
  Sender: FDA-Public Use
  Company Number: US-PFIZER INC-2007065245

PATIENT
  Sex: Female
  Weight: 86.2 kg

DRUGS (3)
  1. CHANTIX [Suspect]
     Indication: SMOKING CESSATION THERAPY
  2. PERCOCET [Concomitant]
  3. LOTREL [Concomitant]

REACTIONS (6)
  - CONSTIPATION [None]
  - DIZZINESS [None]
  - DRY SKIN [None]
  - DYSGEUSIA [None]
  - DYSPEPSIA [None]
  - NAUSEA [None]
